FAERS Safety Report 17296334 (Version 2)
Quarter: 2020Q1

REPORT INFORMATION
  Report Type: Spontaneous
  Country: JP (occurrence: JP)
  Receive Date: 20200121
  Receipt Date: 20200122
  Transmission Date: 20200409
  Serious: Yes (Death, Life-Threatening, Hospitalization)
  Sender: FDA-Public Use
  Company Number: JP-009507513-2001JPN007019

PATIENT
  Age: 52 Year
  Sex: Female

DRUGS (18)
  1. PREDONINE [Concomitant]
     Active Substance: PREDNISOLONE
     Dosage: UNKNOWN
  2. CARBOCYSTEINE [Concomitant]
     Active Substance: CARBOCYSTEINE
     Dosage: UNKNOWN
  3. METOLATE [Suspect]
     Active Substance: METHOTREXATE
     Indication: COLLAGEN DISORDER
     Dosage: 6 MILLIGRAM, QW
     Route: 048
     Dates: start: 20171211, end: 20191028
  4. LIPIDIL [Concomitant]
     Active Substance: FENOFIBRATE
     Dosage: UNKNOWN
  5. GENINAX [Concomitant]
     Active Substance: GARENOXACIN MESYLATE
     Dosage: UNKNOWN
  6. ALENDRONATE SODIUM. [Suspect]
     Active Substance: ALENDRONATE SODIUM
     Indication: OSTEOPOROSIS
     Dosage: 35 MILLIGRAM, QW
     Route: 048
     Dates: start: 20140926, end: 20191028
  7. METHYCOBAL [Concomitant]
     Active Substance: METHYLCOBALAMIN
     Dosage: UNKNOWN
  8. LOXOPROFEN SODIUM [Concomitant]
     Active Substance: LOXOPROFEN SODIUM
     Dosage: UNKNOWN
  9. ZOLPIDEM TARTRATE. [Concomitant]
     Active Substance: ZOLPIDEM TARTRATE
     Dosage: UNKNOWN
  10. DOGMATYL [Concomitant]
     Active Substance: SULPIRIDE
     Dosage: UNKNOWN
  11. VITAMIN E NICOTINATE [Concomitant]
     Dosage: UNKNOWN
  12. ERYTHROMYCIN. [Concomitant]
     Active Substance: ERYTHROMYCIN
     Dosage: UNKNOWN
  13. JZOLOFT [Concomitant]
     Active Substance: SERTRALINE HYDROCHLORIDE
     Dosage: UNKNOWN
  14. CODEINE PHOSPHATE [Concomitant]
     Active Substance: CODEINE PHOSPHATE
     Dosage: UNKNOWN
  15. ANPLAG [Concomitant]
     Active Substance: SARPOGRELATE
     Dosage: UNKNOWN
  16. CLARITHROMYCIN. [Concomitant]
     Active Substance: CLARITHROMYCIN
     Dosage: UNKNOWN
  17. TAKECAB [Concomitant]
     Active Substance: VONOPRAZAN FUMURATE
     Dosage: UNKNOWN
  18. ALFACALCIDOL [Concomitant]
     Active Substance: ALFACALCIDOL
     Dosage: UNKNOWN

REACTIONS (2)
  - Osteonecrosis of jaw [Fatal]
  - Pancytopenia [Fatal]

NARRATIVE: CASE EVENT DATE: 20191029
